FAERS Safety Report 15615170 (Version 1)
Quarter: 2018Q4

REPORT INFORMATION
  Report Type: Report from Study
  Country: None (occurrence: GB)
  Receive Date: 20181114
  Receipt Date: 20181114
  Transmission Date: 20190205
  Serious: Yes (Hospitalization, Other)
  Sender: FDA-Public Use
  Company Number: GB-ABBVIE-18K-167-2524671-00

PATIENT
  Age: 60 Year
  Sex: Male

DRUGS (1)
  1. HUMIRA [Suspect]
     Active Substance: ADALIMUMAB
     Indication: CROHN^S DISEASE
     Route: 058
     Dates: start: 20170329

REACTIONS (5)
  - Cerebrovascular accident [Unknown]
  - Aphasia [Recovered/Resolved]
  - Carotid artery occlusion [Unknown]
  - Hemiparesis [Unknown]
  - Fall [Unknown]

NARRATIVE: CASE EVENT DATE: 20180901
